FAERS Safety Report 14119359 (Version 6)
Quarter: 2022Q2

REPORT INFORMATION
  Report Type: Spontaneous
  Country: US (occurrence: US)
  Receive Date: 20171024
  Receipt Date: 20220527
  Transmission Date: 20220720
  Serious: No
  Sender: FDA-Public Use
  Company Number: US-PFIZER INC-2017455102

PATIENT
  Age: 62 Year
  Sex: Female

DRUGS (1)
  1. XELJANZ XR [Suspect]
     Active Substance: TOFACITINIB CITRATE
     Indication: Rheumatoid arthritis
     Dosage: 11 MG, 1X/DAY

REACTIONS (6)
  - Product dose omission issue [Unknown]
  - Malaise [Unknown]
  - Nasopharyngitis [Unknown]
  - Hypokinesia [Unknown]
  - Feeling abnormal [Unknown]
  - Drug hypersensitivity [Unknown]
